FAERS Safety Report 22264569 (Version 1)
Quarter: 2023Q2

REPORT INFORMATION
  Report Type: Other
  Country: US (occurrence: None)
  Receive Date: 20230428
  Receipt Date: 20230428
  Transmission Date: 20230722
  Serious: No
  Sender: FDA-Public Use
  Company Number: US-ROCHE-3340186

PATIENT
  Age: 57 Year
  Sex: Male
  Weight: 97.610 kg

DRUGS (1)
  1. OCREVUS [Suspect]
     Active Substance: OCRELIZUMAB
     Indication: Relapsing multiple sclerosis
     Route: 065

REACTIONS (13)
  - COVID-19 [Unknown]
  - Hypoaesthesia [Unknown]
  - Vision blurred [Unknown]
  - Diplopia [Unknown]
  - Muscular weakness [Unknown]
  - Paraesthesia [Unknown]
  - Temperature intolerance [Unknown]
  - Fatigue [Unknown]
  - Overweight [Unknown]
  - Tremor [Unknown]
  - Nausea [Unknown]
  - Influenza like illness [Unknown]
  - Eye disorder [Unknown]
